FAERS Safety Report 20882265 (Version 2)
Quarter: 2022Q4

REPORT INFORMATION
  Report Type: Spontaneous
  Country: US (occurrence: US)
  Receive Date: 20220527
  Receipt Date: 20221019
  Transmission Date: 20230112
  Serious: Yes (Other)
  Sender: FDA-Public Use
  Company Number: US-BRISTOL-MYERS SQUIBB COMPANY-2022-044199

PATIENT
  Age: 42 Year
  Sex: Male

DRUGS (1)
  1. ORENCIA [Suspect]
     Active Substance: ABATACEPT
     Indication: Rheumatoid arthritis
     Dosage: ACF7353 LOT EXPIRY: 31-MAY-2024
     Route: 058
     Dates: start: 202011

REACTIONS (4)
  - Mast cell activation syndrome [Unknown]
  - Mental status changes [Unknown]
  - Nonspecific reaction [Unknown]
  - Visual impairment [Unknown]
